FAERS Safety Report 8314694-1 (Version None)
Quarter: 2012Q2

REPORT INFORMATION
  Report Type: 
  Country: None (occurrence: None)
  Receive Date: 20120426
  Receipt Date: 20120413
  Transmission Date: 20120825
  Serious: Yes (Hospitalization)
  Sender: FDA-Public Use
  Company Number: US-ELI_LILLY_AND_COMPANY-US201204005159

PATIENT
  Age: 56 Year
  Sex: Female

DRUGS (3)
  1. OXYCONTIN [Concomitant]
  2. LYRICA [Concomitant]
  3. CYMBALTA [Suspect]
     Indication: FIBROMYALGIA
     Dosage: 60 MG, QD
     Dates: start: 20120124, end: 20120301

REACTIONS (9)
  - VISUAL IMPAIRMENT [None]
  - NAUSEA [None]
  - DYSPEPSIA [None]
  - FATIGUE [None]
  - ABDOMINAL DISTENSION [None]
  - FEELING ABNORMAL [None]
  - CONSTIPATION [None]
  - DIZZINESS [None]
  - DRY MOUTH [None]
